FAERS Safety Report 7641701-1 (Version None)
Quarter: 2011Q3

REPORT INFORMATION
  Report Type: 
  Country: None (occurrence: None)
  Receive Date: 20110728
  Receipt Date: 20110720
  Transmission Date: 20111222
  Serious: Yes (Other)
  Sender: FDA-Public Use
  Company Number: ZA-VIIV HEALTHCARE LIMITED-B0735481A

PATIENT
  Age: 34 Year
  Sex: Female

DRUGS (5)
  1. FLOXACILLIN SODIUM [Concomitant]
  2. PYRAZINAMIDE [Suspect]
  3. LAMIVUDINE [Suspect]
     Indication: HIV INFECTION
     Route: 065
  4. EFAVIRENZ [Suspect]
     Indication: HIV INFECTION
     Route: 065
  5. DIDANOSINE [Suspect]
     Indication: HIV INFECTION
     Route: 065

REACTIONS (4)
  - SKIN EXFOLIATION [None]
  - BREAST MASS [None]
  - LYMPHADENOPATHY [None]
  - IMMUNE RECONSTITUTION SYNDROME [None]
